FAERS Safety Report 5133176-1 (Version None)
Quarter: 2006Q4

REPORT INFORMATION
  Report Type: 
  Country: None (occurrence: None)
  Receive Date: 20061023
  Receipt Date: 20061018
  Transmission Date: 20070319
  Serious: Yes (Hospitalization)
  Sender: FDA-Public Use
  Company Number: DE-BOEHRINGER INGELHEIM PHARMACEUTICALS, INC.-2006-DE-05494DE

PATIENT
  Sex: Male

DRUGS (1)
  1. SIFROL [Suspect]
     Route: 048

REACTIONS (1)
  - TACHYCARDIA [None]
